FAERS Safety Report 9827360 (Version 1)
Quarter: 2013Q4

REPORT INFORMATION
  Report Type: Spontaneous
  Country: US (occurrence: None)
  Receive Date: 20131120
  Receipt Date: 20131120
  Transmission Date: 20140711
  Serious: No
  Sender: FDA-Public Use
  Company Number: 1000047765

PATIENT
  Sex: Female

DRUGS (4)
  1. VIIBRYD (VILAZODONE HYDROCHLORIDE) (10 MILLGRAM, TABLETS) [Suspect]
     Indication: ANXIETY DISORDER
     Route: 048
  2. VIIBRYD (VILAZODONE HYDROCHLORIDE) (10 MILLGRAM, TABLETS) [Suspect]
     Indication: DEPRESSION
     Route: 048
  3. VIIBRYD (VILAZODONE HYDROCHLORIDE) [Suspect]
     Indication: ANXIETY DISORDER
     Route: 048
  4. VIIBRYD (VILAZODONE HYDROCHLORIDE) [Suspect]
     Indication: DEPRESSION
     Route: 048

REACTIONS (1)
  - Nightmare [None]
